FAERS Safety Report 5257436-9 (Version None)
Quarter: 2007Q1

REPORT INFORMATION
  Report Type: 
  Country: None (occurrence: None)
  Receive Date: 20070307
  Receipt Date: 20060817
  Transmission Date: 20070707
  Serious: No
  Sender: FDA-Public Use
  Company Number: US-GLAXOSMITHKLINE-A0614418A

PATIENT
  Age: 60 Year
  Sex: Male
  Weight: 104.1 kg

DRUGS (1)
  1. REQUIP [Suspect]
     Indication: PARKINSON'S DISEASE
     Dosage: 9MG UNKNOWN
     Route: 048
     Dates: start: 20060601, end: 20060619

REACTIONS (1)
  - ERECTILE DYSFUNCTION [None]
